FAERS Safety Report 10443831 (Version 1)
Quarter: 2014Q3

REPORT INFORMATION
  Report Type: Report from Study
  Country: CA (occurrence: CA)
  Receive Date: 20140910
  Receipt Date: 20140910
  Transmission Date: 20150326
  Serious: Yes (Hospitalization)
  Sender: FDA-Public Use
  Company Number: CA-JNJFOC-20140902817

PATIENT
  Sex: Female
  Weight: 122.47 kg

DRUGS (3)
  1. STELARA [Suspect]
     Active Substance: USTEKINUMAB
     Indication: PSORIASIS
     Route: 058
     Dates: start: 201307
  2. SEROQUEL [Suspect]
     Active Substance: QUETIAPINE FUMARATE
     Indication: ANTIDEPRESSANT THERAPY
     Route: 065
     Dates: start: 2013
  3. EFFEXOR [Suspect]
     Active Substance: VENLAFAXINE HYDROCHLORIDE
     Indication: ANTIDEPRESSANT THERAPY
     Route: 065
     Dates: start: 2013

REACTIONS (3)
  - Lymph gland infection [Recovering/Resolving]
  - Weight increased [Unknown]
  - Headache [Unknown]

NARRATIVE: CASE EVENT DATE: 2013
